FAERS Safety Report 18440481 (Version 1)
Quarter: 2020Q4

REPORT INFORMATION
  Report Type: Spontaneous
  Country: GB (occurrence: GB)
  Receive Date: 20201029
  Receipt Date: 20201029
  Transmission Date: 20210114
  Serious: Yes (Other)
  Sender: FDA-Public Use
  Company Number: GB-TEVA-2020-GB-1842402

PATIENT
  Age: 34 Year
  Sex: Female
  Weight: 66 kg

DRUGS (8)
  1. FOSTAIR [Concomitant]
     Active Substance: BECLOMETHASONE\FORMOTEROL
     Dosage: 4  DOSAGE FORMS
     Route: 055
     Dates: start: 20180110
  2. SERTRALINE [Interacting]
     Active Substance: SERTRALINE HYDROCHLORIDE
     Indication: ANXIETY
     Dosage: 100 MILLIGRAM DAILY; IN THE MORNING.
     Dates: start: 20200214
  3. SALBUTAMOL [Concomitant]
     Active Substance: ALBUTEROL
     Dosage: ONE TO TWO PUFFS UP TO FOUR TIMES DAILY.
     Dates: start: 20180110
  4. MONTELUKAST [Concomitant]
     Active Substance: MONTELUKAST SODIUM
     Dosage: 1 DOSAGE FORMS DAILY; IN THE EVENING.
     Dates: start: 20160520
  5. METRONIDAZOLE. [Concomitant]
     Active Substance: METRONIDAZOLE
     Dosage: APPLY. 2 DOSAGE FORMS
     Dates: start: 20200123
  6. PROMETHAZINE HYDROCHLORIDE. [Concomitant]
     Active Substance: PROMETHAZINE HYDROCHLORIDE
     Dosage: 1 DOSAGE FORMS DAILY; AT NIGHT.
     Dates: start: 20200824
  7. CLOTRIMAZOLE. [Concomitant]
     Active Substance: CLOTRIMAZOLE
     Dosage: 1 DOSAGE FORMS DAILY; INSERTED AT NIGHT.
     Dates: start: 20200907
  8. TRAMADOL. [Suspect]
     Active Substance: TRAMADOL
     Indication: PAIN
     Dosage: 50 MG
     Dates: start: 20200911

REACTIONS (2)
  - Serotonin syndrome [Recovered/Resolved]
  - Potentiating drug interaction [Unknown]

NARRATIVE: CASE EVENT DATE: 20200927
